FAERS Safety Report 6028895-9 (Version None)
Quarter: 2008Q4

REPORT INFORMATION
  Report Type: 
  Country: None (occurrence: None)
  Receive Date: 20081222
  Receipt Date: 20081029
  Transmission Date: 20090506
  Serious: No
  Sender: FDA-Public Use
  Company Number: ALL1-2008-03158

PATIENT

DRUGS (1)
  1. VYVANSE [Suspect]

REACTIONS (4)
  - DRUG EFFECT DECREASED [None]
  - IRRITABILITY [None]
  - NIGHTMARE [None]
  - SENSORY DISTURBANCE [None]
